APPROVED DRUG PRODUCT: BUCLADIN-S
Active Ingredient: BUCLIZINE HYDROCHLORIDE
Strength: 50MG
Dosage Form/Route: TABLET;ORAL
Application: N010911 | Product #006
Applicant: STUART PHARMACEUTICALS DIV ICI AMERICAS
Approved: Approved Prior to Jan 1, 1982 | RLD: No | RS: No | Type: DISCN